FAERS Safety Report 6912433-X (Version None)
Quarter: 2010Q3

REPORT INFORMATION
  Report Type: 
  Country: None (occurrence: None)
  Receive Date: 20100806
  Receipt Date: 20080509
  Transmission Date: 20110219
  Serious: No
  Sender: FDA-Public Use
  Company Number: US-PFIZER INC-2008040722

PATIENT
  Sex: Female
  Weight: 102.27 kg

DRUGS (8)
  1. GLUCOTROL [Suspect]
     Dates: start: 20050901, end: 20060101
  2. GLIPIZIDE [Suspect]
     Indication: TYPE 2 DIABETES MELLITUS
     Dates: start: 20060101
  3. LAMISIL [Concomitant]
     Indication: NAIL INFECTION
  4. LISINOPRIL [Concomitant]
  5. LIPITOR [Concomitant]
  6. LEVOXYL [Concomitant]
  7. MAXZIDE [Concomitant]
  8. ACETYLSALICYLIC ACID SRT [Concomitant]

REACTIONS (3)
  - BLOOD GLUCOSE INCREASED [None]
  - DRUG INEFFECTIVE [None]
  - NAIL INFECTION [None]
